FAERS Safety Report 7403088-9 (Version None)
Quarter: 2011Q2

REPORT INFORMATION
  Report Type: 
  Country: None (occurrence: None)
  Receive Date: 20110408
  Receipt Date: 20110330
  Transmission Date: 20111010
  Serious: Yes (Other)
  Sender: FDA-Public Use
  Company Number: FR-ASTRAZENECA-2011SE18573

PATIENT
  Age: 78 Year
  Sex: Male

DRUGS (5)
  1. SYMBICORT [Interacting]
     Dosage: 320/9 UG PER DOSE, TWO INHALATIONS TWICE PER DAY
     Route: 055
  2. AMIODARONE [Concomitant]
  3. SYMBICORT [Suspect]
     Dosage: 320/9 UG PER DOSE, ONE INHALATION TWICE PER DAY
     Route: 055
  4. PREVISCAN [Interacting]
  5. DIGOXIN [Concomitant]

REACTIONS (2)
  - INTERNATIONAL NORMALISED RATIO INCREASED [None]
  - DRUG INTERACTION [None]
